FAERS Safety Report 5190487-1 (Version None)
Quarter: 2006Q4

REPORT INFORMATION
  Report Type: 
  Country: None (occurrence: None)
  Receive Date: 20061222
  Receipt Date: 20061221
  Transmission Date: 20070319
  Serious: Yes (Life-Threatening)
  Sender: FDA-Public Use
  Company Number: MX-GLAXOSMITHKLINE-A0632513A

PATIENT
  Age: 65 Year
  Sex: Male

DRUGS (2)
  1. AVODART [Suspect]
     Route: 048
     Dates: start: 20061021
  2. XATRAL [Concomitant]

REACTIONS (11)
  - ABDOMINAL DISTENSION [None]
  - ANAEMIA [None]
  - BACK PAIN [None]
  - ENCEPHALOPATHY [None]
  - ILEUS [None]
  - INCOHERENT [None]
  - JAUNDICE [None]
  - OEDEMA PERIPHERAL [None]
  - PARAESTHESIA [None]
  - RESPIRATORY FAILURE [None]
  - ROAD TRAFFIC ACCIDENT [None]
